FAERS Safety Report 5650570-0 (Version None)
Quarter: 2008Q1

REPORT INFORMATION
  Report Type: 
  Country: None (occurrence: None)
  Receive Date: 20080304
  Receipt Date: 20080304
  Transmission Date: 20080703
  Serious: No
  Sender: FDA-Public Use
  Company Number: None

PATIENT
  Age: 21 Year
  Sex: Female
  Weight: 58.9676 kg

DRUGS (1)
  1. CLARITHROMYCIN [Suspect]
     Indication: SINUSITIS
     Dosage: 1 PILL TWICE PER DAY PO
     Route: 048
     Dates: start: 20080212, end: 20080218

REACTIONS (4)
  - ANXIETY [None]
  - INSOMNIA [None]
  - NIGHTMARE [None]
  - PARANOIA [None]
